FAERS Safety Report 4682012-6 (Version None)
Quarter: 2005Q2

REPORT INFORMATION
  Report Type: 
  Country: None (occurrence: None)
  Receive Date: 20050606
  Receipt Date: 20050524
  Transmission Date: 20051028
  Serious: Yes (Death, Life-Threatening, Hospitalization)
  Sender: FDA-Public Use
  Company Number: JP-JNJFOC-20050104732

PATIENT
  Sex: Female
  Weight: 60.3 kg

DRUGS (7)
  1. REMICADE [Suspect]
     Route: 042
  2. REMICADE [Suspect]
     Route: 042
  3. REMICADE [Suspect]
     Indication: RHEUMATOID ARTHRITIS
     Route: 042
  4. RHEUMATREX [Suspect]
     Route: 049
  5. RHEUMATREX [Suspect]
     Route: 049
  6. RHEUMATREX [Suspect]
     Route: 049
  7. RHEUMATREX [Suspect]
     Route: 049

REACTIONS (10)
  - ACUTE RESPIRATORY DISTRESS SYNDROME [None]
  - ACUTE RESPIRATORY FAILURE [None]
  - C-REACTIVE PROTEIN INCREASED [None]
  - CANDIDA SEROLOGY POSITIVE [None]
  - DRUG INTERACTION [None]
  - FUNGUS SEROLOGY TEST POSITIVE [None]
  - MULTI-ORGAN FAILURE [None]
  - PNEUMOCYSTIS JIROVECI PNEUMONIA [None]
  - PNEUMONIA [None]
  - PNEUMONIA STAPHYLOCOCCAL [None]
